FAERS Safety Report 11842716 (Version 5)
Quarter: 2016Q1

REPORT INFORMATION
  Report Type: Report from Study
  Country: ES (occurrence: ES)
  Receive Date: 20151216
  Receipt Date: 20160122
  Transmission Date: 20160526
  Serious: Yes (Hospitalization, Other)
  Sender: FDA-Public Use
  Company Number: ES-ROCHE-1664023

PATIENT
  Sex: Male

DRUGS (4)
  1. VEMURAFENIB [Interacting]
     Active Substance: VEMURAFENIB
     Indication: METASTATIC MALIGNANT MELANOMA
     Dosage: 240 MG PER TABLET
     Route: 065
     Dates: start: 20150526, end: 20151211
  2. PRISTIQ EXTENDED RELEASE [Suspect]
     Active Substance: DESVENLAFAXINE SUCCINATE
     Indication: DEPRESSION
     Route: 065
     Dates: start: 20150622
  3. ESCITALOPRAM [Suspect]
     Active Substance: ESCITALOPRAM OXALATE
     Indication: DEPRESSION
     Route: 065
     Dates: end: 20150622
  4. COBIMETINIB [Interacting]
     Active Substance: COBIMETINIB
     Indication: METASTATIC MALIGNANT MELANOMA
     Route: 048
     Dates: start: 20150605, end: 20150804

REACTIONS (5)
  - Psychomotor hyperactivity [Recovered/Resolved]
  - Drug interaction [Unknown]
  - Disorientation [Recovered/Resolved]
  - Toxicity to various agents [Unknown]
  - Disorientation [Recovered/Resolved]

NARRATIVE: CASE EVENT DATE: 20150615
